FAERS Safety Report 5929485-6 (Version None)
Quarter: 2008Q3

REPORT INFORMATION
  Report Type: 
  Country: None (occurrence: None)
  Receive Date: 20080922
  Receipt Date: 20070927
  Transmission Date: 20090109
  Serious: No
  Sender: FDA-Public Use
  Company Number: T200701184

PATIENT
  Age: 57 Year
  Sex: Male
  Weight: 90.7 kg

DRUGS (8)
  1. HYDROCODONE BITARTRATE + ACETAMINOPHEN [Suspect]
     Indication: BACK PAIN
     Dosage: 1 TABLET EVERY 4 HOURS, PM, ORAL
     Route: 048
     Dates: start: 20040101
  2. PREVACID [Concomitant]
  3. VOLTAREN /00372301/ (DICLOFENAC) [Concomitant]
  4. PLAVIX [Concomitant]
  5. TOPROL-XL [Concomitant]
  6. CENTRUM SILVER (ASCORBIC ACID, CALCIUM, MINERALS NOS, RETINOL, TOCOPHE [Concomitant]
  7. DIAZEPAM [Concomitant]
  8. ZANAFLEX [Concomitant]

REACTIONS (4)
  - DRUG INEFFECTIVE [None]
  - DYSGEUSIA [None]
  - HEADACHE [None]
  - PARAESTHESIA [None]
